FAERS Safety Report 9120341 (Version 1)
Quarter: 2013Q1

REPORT INFORMATION
  Report Type: Spontaneous
  Country: US (occurrence: US)
  Receive Date: 20130226
  Receipt Date: 20130226
  Transmission Date: 20140127
  Serious: Yes (Other)
  Sender: FDA-Public Use
  Company Number: CHPA2013US003388

PATIENT
  Age: 82 Year
  Sex: Female

DRUGS (2)
  1. BENEFIBER STICK PACKS [Suspect]
     Indication: DIARRHOEA
     Dosage: 1 DF, QOD
     Route: 048
  2. COUMADIN ^BOOTS^ [Concomitant]
     Route: 048

REACTIONS (3)
  - Cardiac failure congestive [Not Recovered/Not Resolved]
  - Therapeutic response unexpected [Unknown]
  - Off label use [Unknown]
